FAERS Safety Report 9342499 (Version 1)
Quarter: 2013Q2

REPORT INFORMATION
  Report Type: Spontaneous
  Country: ES (occurrence: ES)
  Receive Date: 20130611
  Receipt Date: 20130611
  Transmission Date: 20140414
  Serious: Yes (Death)
  Sender: FDA-Public Use
  Company Number: ES-TEVA-410470ISR

PATIENT
  Sex: Male

DRUGS (2)
  1. COPAXONE [Suspect]
     Indication: MULTIPLE SCLEROSIS
     Route: 058
     Dates: start: 2010
  2. ANTIDEPRESSANTS NOS [Concomitant]
     Indication: ANTIDEPRESSANT THERAPY

REACTIONS (2)
  - Completed suicide [Fatal]
  - Feeling abnormal [Unknown]
